FAERS Safety Report 14485239 (Version 1)
Quarter: 2018Q1

REPORT INFORMATION
  Report Type: Spontaneous
  Country: US (occurrence: US)
  Receive Date: 20180205
  Receipt Date: 20180205
  Transmission Date: 20180509
  Serious: Yes (Other)
  Sender: FDA-Public Use
  Company Number: US-009507513-1802USA000536

PATIENT
  Age: 76 Year
  Sex: Female

DRUGS (1)
  1. KEYTRUDA [Suspect]
     Active Substance: PEMBROLIZUMAB
     Indication: NEOPLASM MALIGNANT
     Dosage: EVERY 15 DAYS
     Route: 042

REACTIONS (8)
  - Myalgia [Unknown]
  - Headache [Unknown]
  - Cough [Unknown]
  - Nasopharyngitis [Unknown]
  - Inappropriate schedule of drug administration [Unknown]
  - Pulmonary congestion [Unknown]
  - Fatigue [Unknown]
  - Pain [Unknown]
